FAERS Safety Report 8840662 (Version 1)
Quarter: 2012Q4

REPORT INFORMATION
  Report Type: 
  Country: IT (occurrence: IT)
  Receive Date: 20121015
  Receipt Date: 20121015
  Transmission Date: 20130627
  Serious: Yes (Other)
  Sender: FDA-Public Use
  Company Number: IT-PFIZER INC-2012251239

PATIENT
  Age: 49 Year
  Sex: Male

DRUGS (1)
  1. FLUCONAZOLE [Suspect]
     Indication: FUNGAL INFECTION
     Dosage: 1 DF, single
     Route: 048
     Dates: start: 20120120, end: 20120120

REACTIONS (3)
  - Orbital oedema [Recovering/Resolving]
  - Drug hypersensitivity [Recovering/Resolving]
  - Palatal oedema [Recovering/Resolving]
